FAERS Safety Report 7757724-8 (Version None)
Quarter: 2011Q3

REPORT INFORMATION
  Report Type: 
  Country: None (occurrence: None)
  Receive Date: 20110916
  Receipt Date: 20110906
  Transmission Date: 20111222
  Serious: Yes (Hospitalization)
  Sender: FDA-Public Use
  Company Number: VE-GENENTECH-324306

PATIENT
  Sex: Male

DRUGS (1)
  1. XOLAIR [Suspect]
     Indication: ASTHMA
     Dosage: UNK UNK, UNKNOWN
     Route: 065
     Dates: start: 20110201

REACTIONS (1)
  - ASTHMATIC CRISIS [None]
